FAERS Safety Report 6368176-7 (Version None)
Quarter: 2009Q3

REPORT INFORMATION
  Report Type: 
  Country: None (occurrence: None)
  Receive Date: 20090922
  Receipt Date: 20090911
  Transmission Date: 20100115
  Serious: Yes (Hospitalization, Other)
  Sender: FDA-Public Use
  Company Number: PHHO2007BR14338

PATIENT
  Sex: Female
  Weight: 69 kg

DRUGS (6)
  1. DIOVAN [Suspect]
     Indication: HYPERTENSION
     Dosage: 160 MG
     Route: 048
  2. EXFORGE [Suspect]
     Indication: HYPERTENSION
     Dosage: 160/5
     Route: 048
     Dates: start: 20060101
  3. LIPITOR [Concomitant]
     Indication: CARDIAC DISORDER
     Dosage: HALF TABLET EVERY OTHER DAY
     Route: 048
     Dates: start: 20070201
  4. SUSTRATE [Concomitant]
     Indication: CARDIAC DISORDER
     Dosage: 1 TABLET EVERY 12 HOURS
     Route: 048
  5. CARVEDILOL [Concomitant]
     Indication: CARDIAC DISORDER
     Dosage: 12.5 MG, QD
     Route: 048
  6. AAS [Concomitant]
     Indication: CARDIAC DISORDER
     Dosage: 200 MG, QD2SDO
     Route: 048

REACTIONS (7)
  - ANGIOPLASTY [None]
  - CARDIAC ARREST [None]
  - COUGH [None]
  - ERUCTATION [None]
  - INFARCTION [None]
  - MITRAL VALVE PROLAPSE [None]
  - PNEUMONIA [None]
